FAERS Safety Report 7720798-4 (Version None)
Quarter: 2011Q3

REPORT INFORMATION
  Report Type: 
  Country: None (occurrence: None)
  Receive Date: 20110825
  Receipt Date: 20110811
  Transmission Date: 20111222
  Serious: Yes (Hospitalization)
  Sender: FDA-Public Use
  Company Number: 15394018

PATIENT
  Age: 66 Year
  Sex: Male

DRUGS (5)
  1. PLACEBO [Suspect]
     Indication: EMBOLISM
     Dates: start: 20101110, end: 20101114
  2. ACETYLSALICYLIC ACID SRT [Concomitant]
  3. WARFARIN SODIUM [Suspect]
     Indication: EMBOLISM
     Dosage: 8 MILLIGRAM 1/1 DAY
     Route: 048
     Dates: start: 20101110, end: 20101114
  4. ENOXAPARIN SODIUM [Suspect]
     Indication: EMBOLISM
     Dosage: 90 MILLIGRAM 2/1 DAY
     Route: 058
     Dates: start: 20101110, end: 20101114
  5. APIXABAN [Suspect]
     Indication: EMBOLISM
     Dosage: 1 DOSAGE FORM 2/1 DAY
     Route: 048
     Dates: start: 20101110, end: 20101114

REACTIONS (7)
  - ALCOHOL ABUSE [None]
  - OVERDOSE [None]
  - AORTIC ANEURYSM [None]
  - METASTASIS [None]
  - COLON CANCER METASTATIC [None]
  - COLON CANCER [None]
  - INTERNATIONAL NORMALISED RATIO INCREASED [None]
